FAERS Safety Report 13706520 (Version 6)
Quarter: 2017Q4

REPORT INFORMATION
  Report Type: Report from Study
  Country: CA (occurrence: CA)
  Receive Date: 20170630
  Receipt Date: 20171206
  Transmission Date: 20180320
  Serious: Yes (Hospitalization, Other)
  Sender: FDA-Public Use
  Company Number: CA-GLAXOSMITHKLINE-CA2017GSK100993

PATIENT
  Age: 49 Year
  Sex: Female

DRUGS (3)
  1. SALBUTAMOL SULPHATE [Suspect]
     Active Substance: ALBUTEROL SULFATE
     Indication: PRODUCT USED FOR UNKNOWN INDICATION
     Dosage: UNK
  2. NUCALA [Suspect]
     Active Substance: MEPOLIZUMAB
     Dosage: 100 MG, Z
     Route: 042
     Dates: start: 20171101
  3. NUCALA [Suspect]
     Active Substance: MEPOLIZUMAB
     Indication: ASTHMA
     Dosage: 100 MG, Z
     Route: 042
     Dates: start: 20170712

REACTIONS (16)
  - Pneumonia pseudomonal [Unknown]
  - Haemorrhagic disorder [Unknown]
  - Bronchospasm [Unknown]
  - Bronchogenic cyst [Unknown]
  - Bronchiectasis [Unknown]
  - Bacterial infection [Unknown]
  - Respiration abnormal [Unknown]
  - Muscle spasms [Unknown]
  - Sinus tachycardia [Unknown]
  - Secretion discharge [Not Recovered/Not Resolved]
  - Chest discomfort [Recovering/Resolving]
  - Asthma [Unknown]
  - Malaise [Unknown]
  - Tracheomalacia [Unknown]
  - Nasopharyngitis [Unknown]
  - Increased viscosity of upper respiratory secretion [Not Recovered/Not Resolved]

NARRATIVE: CASE EVENT DATE: 201705
